FAERS Safety Report 9096157 (Version 2)
Quarter: 2013Q2

REPORT INFORMATION
  Report Type: Spontaneous
  Country: DE (occurrence: DE)
  Receive Date: 20130207
  Receipt Date: 20130427
  Transmission Date: 20140414
  Serious: Yes (Death)
  Sender: FDA-Public Use
  Company Number: DE-ROCHE-1188544

PATIENT
  Sex: Female

DRUGS (3)
  1. AVASTIN [Suspect]
     Indication: GLIOBLASTOMA
     Route: 042
     Dates: start: 201205, end: 201208
  2. AVASTIN [Suspect]
     Indication: OFF LABEL USE
  3. KEPPRA [Concomitant]
     Route: 048

REACTIONS (1)
  - Disease progression [Fatal]
